FAERS Safety Report 9472189 (Version 1)
Quarter: 2013Q3

REPORT INFORMATION
  Report Type: Spontaneous
  Country: US (occurrence: None)
  Receive Date: 20130821
  Receipt Date: 20130821
  Transmission Date: 20140515
  Serious: No
  Sender: FDA-Public Use
  Company Number: None

PATIENT
  Age: 70 Year
  Sex: Male
  Weight: 81.65 kg

DRUGS (2)
  1. BACITRACIN [Suspect]
     Indication: CONJUNCTIVITIS
     Dosage: SMALL AMOUNT?INTO THE EYE?ONCE ONLY
  2. BACITRACIN [Suspect]
     Indication: DRY EYE
     Dosage: SMALL AMOUNT?INTO THE EYE?ONCE ONLY

REACTIONS (5)
  - Eye irritation [None]
  - Ocular hyperaemia [None]
  - Insomnia [None]
  - Pain [None]
  - Product contamination [None]
